FAERS Safety Report 10433271 (Version 1)
Quarter: 2014Q3

REPORT INFORMATION
  Report Type: Spontaneous
  Country: US (occurrence: None)
  Receive Date: 20140904
  Receipt Date: 20140904
  Transmission Date: 20150326
  Serious: Yes (Hospitalization)
  Sender: FDA-Public Use
  Company Number: None

PATIENT
  Age: 60 Year
  Sex: Male
  Weight: 74 kg

DRUGS (2)
  1. CISPLATIN. [Suspect]
     Active Substance: CISPLATIN
     Dates: end: 20140729
  2. 5-FLUOROURACIL [Suspect]
     Active Substance: FLUOROURACIL
     Dosage: CONTINUOUS INFUSION OVER 4 DAYS
     Dates: end: 20140802

REACTIONS (6)
  - Dyspnoea [None]
  - Pleural effusion [None]
  - Metastases to bone [None]
  - Mobility decreased [None]
  - Confusional state [None]
  - Disease progression [None]

NARRATIVE: CASE EVENT DATE: 20140829
